FAERS Safety Report 6290774-X (Version None)
Quarter: 2009Q3

REPORT INFORMATION
  Report Type: 
  Country: None (occurrence: None)
  Receive Date: 20090730
  Receipt Date: 20090619
  Transmission Date: 20100115
  Serious: Yes (Hospitalization)
  Sender: FDA-Public Use
  Company Number: PHHO2009DE07987

PATIENT
  Sex: Male

DRUGS (44)
  1. CYCLOSPORINE [Suspect]
     Indication: RENAL TRANSPLANT
     Dosage: 350 MG DAILY
     Route: 048
     Dates: start: 20040502, end: 20040502
  2. CYCLOSPORINE [Suspect]
     Dosage: 300 MG TWICE DAILY
     Route: 048
     Dates: start: 20040503, end: 20040505
  3. CYCLOSPORINE [Suspect]
     Dosage: 275 MG TWICE DAILY
     Dates: start: 20040506, end: 20040506
  4. CYCLOSPORINE [Suspect]
     Dosage: 250 MG TWICE DAILY
     Dates: start: 20040507, end: 20040507
  5. CYCLOSPORINE [Suspect]
     Dosage: 262.5 MG TWICE DAILY
     Dates: start: 20040508
  6. CYCLOSPORINE [Suspect]
     Dosage: 275 MG TWICE DAILY
     Dates: start: 20040510
  7. CYCLOSPORINE [Suspect]
     Dosage: 262.5 MG TWICE DAILY
     Dates: start: 20040511
  8. CYCLOSPORINE [Suspect]
     Dosage: 225 MG TWICE DAILY
     Dates: start: 20040512
  9. CYCLOSPORINE [Suspect]
     Dosage: 150 MG DAILY
     Dates: start: 20040517
  10. CYCLOSPORINE [Suspect]
     Dosage: 187.5 MG TWICE DAILY
     Dates: start: 20040524
  11. CYCLOSPORINE [Suspect]
     Dosage: 175 MG TWICE DAILY
     Dates: start: 20040525
  12. CYCLOSPORINE [Suspect]
     Dosage: 287.5 MG TWICE DAILY
     Dates: start: 20040608
  13. CYCLOSPORINE [Suspect]
     Dosage: 275 MG TWICE DAILY
     Dates: start: 20040610
  14. CYCLOSPORINE [Suspect]
     Dosage: 250 MG TWICE DAILY
     Dates: start: 20040613
  15. CYCLOSPORINE [Suspect]
     Dosage: 200 MG TWICE DAILY
     Dates: start: 20040617
  16. CYCLOSPORINE [Suspect]
     Dosage: 112.5 MG TWICE DAILY
     Dates: start: 20040625
  17. CYCLOSPORINE [Suspect]
     Dosage: 125 MG TWICE DAILY
     Dates: start: 20040626
  18. CYCLOSPORINE [Suspect]
     Dosage: 117.5 MG TWICE DAILY
     Dates: start: 20040627
  19. CYCLOSPORINE [Suspect]
     Dosage: 125 MG TWICE DAILY
     Dates: start: 20040712
  20. MYCOPHENOLATE MOFETIL [Suspect]
     Indication: RENAL TRANSPLANT
     Dosage: 1 G DAILY
     Route: 048
     Dates: start: 20040502, end: 20040502
  21. MYCOPHENOLATE MOFETIL [Suspect]
     Dosage: 2 G DAILY
     Route: 048
     Dates: start: 20040503, end: 20040512
  22. MYCOPHENOLATE MOFETIL [Suspect]
     Dosage: 750 MG DAILY
     Dates: start: 20040522
  23. MYCOPHENOLATE MOFETIL [Suspect]
     Dosage: 1000 MG DAILY
     Dates: start: 20040523
  24. MYCOPHENOLATE MOFETIL [Suspect]
     Dosage: 1500 MG DAILY
     Dates: start: 20040524
  25. MYCOPHENOLATE MOFETIL [Suspect]
     Dosage: 2000 MG DAILY
     Dates: start: 20040525, end: 20040617
  26. MYCOPHENOLATE MOFETIL [Suspect]
     Dosage: 1 G TWICE DAILY
     Dates: start: 20040625, end: 20040702
  27. MYCOPHENOLATE MOFETIL [Suspect]
     Dosage: 1000 MG DAILY
     Dates: start: 20040709
  28. PREDNISOLONE [Suspect]
     Indication: RENAL TRANSPLANT
     Dosage: 500 MG DAILY
     Dates: start: 20040502, end: 20040502
  29. PREDNISOLONE [Suspect]
     Dosage: 250 MG DAILY
     Dates: start: 20040503, end: 20040504
  30. PREDNISOLONE [Suspect]
     Dosage: 250 MG DAILY
     Dates: start: 20040625, end: 20040628
  31. DECORTIN-H [Suspect]
     Indication: RENAL TRANSPLANT
     Dosage: 20 MG DAILY
     Route: 048
     Dates: start: 20040504
  32. DECORTIN-H [Suspect]
     Dosage: 15 MG DAILY
     Dates: start: 20040528
  33. DECORTIN-H [Suspect]
     Dosage: 10 MG DAILY
     Dates: start: 20040611
  34. PREDNISOLONE [Suspect]
     Indication: RENAL TRANSPLANT
     Dosage: 80 MG DAILY
     Route: 048
     Dates: start: 20060413, end: 20060707
  35. AMPHOTERICIN B [Concomitant]
  36. BINOTAL [Concomitant]
  37. CIPROFLOXACIN [Concomitant]
  38. CLINDAMYCIN [Concomitant]
  39. SULFAMETHOXAZOLE AND TRIMETHOPRIM [Concomitant]
  40. CYMEVEN [Concomitant]
  41. NORVASC [Concomitant]
  42. QUERTO [Concomitant]
  43. ROCEPHIN [Concomitant]
  44. VALCYTE [Concomitant]

REACTIONS (13)
  - ANURIA [None]
  - BACTERIA STOOL IDENTIFIED [None]
  - BLOOD CREATINE INCREASED [None]
  - BLOOD CREATININE INCREASED [None]
  - DIARRHOEA [None]
  - FUNGUS STOOL IDENTIFIED [None]
  - GASTROENTERITIS [None]
  - HAEMOGLOBIN DECREASED [None]
  - NEPHRITIS [None]
  - POST PROCEDURAL URINE LEAK [None]
  - RENAL HAEMORRHAGE [None]
  - SURGERY [None]
  - URINARY TRACT INFECTION [None]
